FAERS Safety Report 11795294 (Version 2)
Quarter: 2015Q4

REPORT INFORMATION
  Report Type: Report from Study
  Country: US (occurrence: US)
  Receive Date: 20151202
  Receipt Date: 20151214
  Transmission Date: 20160305
  Serious: Yes (Hospitalization)
  Sender: FDA-Public Use
  Company Number: US-ACTELION-A-NJ2015-127527

PATIENT
  Age: 33 Year
  Sex: Female

DRUGS (2)
  1. MACITENTAN [Suspect]
     Active Substance: MACITENTAN
     Indication: PULMONARY ARTERIAL HYPERTENSION
     Dosage: 10 MG, QD
     Route: 048
     Dates: start: 20150917
  2. TREPROSTINIL DIOLAMIN [Concomitant]
     Active Substance: TREPROSTINIL DIOLAMINE
     Dosage: UNK
     Dates: end: 201511

REACTIONS (6)
  - Disease progression [Unknown]
  - Transplant evaluation [Unknown]
  - Pulmonary arterial hypertension [Unknown]
  - Dyspepsia [Unknown]
  - Chest pain [Unknown]
  - Tachycardia [Unknown]

NARRATIVE: CASE EVENT DATE: 201511
